FAERS Safety Report 16299555 (Version 1)
Quarter: 2019Q2

REPORT INFORMATION
  Report Type: Other
  Country: CA (occurrence: CA)
  Receive Date: 20190510
  Receipt Date: 20190510
  Transmission Date: 20190711
  Serious: Yes (Other)
  Sender: FDA-Public Use
  Company Number: CA-APOTEX-2019AP013402

PATIENT
  Sex: Female

DRUGS (4)
  1. TAMIOXIFEN [Suspect]
     Active Substance: TAMOXIFEN
     Indication: BREAST CANCER
     Dosage: UNK
     Route: 048
  2. LETROZOLE. [Concomitant]
     Active Substance: LETROZOLE
     Indication: PRODUCT USED FOR UNKNOWN INDICATION
     Route: 065
  3. IBRANCE [Concomitant]
     Active Substance: PALBOCICLIB
     Indication: PRODUCT USED FOR UNKNOWN INDICATION
     Dosage: UNK
     Route: 065
  4. ZOMETA [Concomitant]
     Active Substance: ZOLEDRONIC ACID
     Indication: PAIN MANAGEMENT
     Route: 065

REACTIONS (7)
  - Breast cancer recurrent [Unknown]
  - Toxicity to various agents [Unknown]
  - Osteolysis [Unknown]
  - Bone pain [Unknown]
  - Metastases to bone [Unknown]
  - Therapy cessation [Unknown]
  - Neutropenia [Unknown]
